FAERS Safety Report 8482411-0 (Version None)
Quarter: 2012Q3

REPORT INFORMATION
  Report Type: 
  Country: None (occurrence: None)
  Receive Date: 20120702
  Receipt Date: 20120620
  Transmission Date: 20120928
  Serious: Yes (Hospitalization)
  Sender: FDA-Public Use
  Company Number: US-GLAXOSMITHKLINE-A0887253A

PATIENT
  Age: 55 Year
  Sex: Male
  Weight: 110.9 kg

DRUGS (2)
  1. AVANDIA [Suspect]
     Indication: DIABETES MELLITUS
     Dosage: 8MG PER DAY
     Route: 048
     Dates: start: 20041112, end: 20070219
  2. AVANDAMET [Suspect]
     Indication: DIABETES MELLITUS
     Route: 048
     Dates: start: 20000101, end: 20041112

REACTIONS (3)
  - MYOCARDIAL INFARCTION [None]
  - STENT PLACEMENT [None]
  - MYOCARDIAL ISCHAEMIA [None]
